FAERS Safety Report 4978529-7 (Version None)
Quarter: 2006Q1

REPORT INFORMATION
  Report Type: 
  Country: None (occurrence: None)
  Receive Date: 20060227
  Receipt Date: 20050524
  Transmission Date: 20060701
  Serious: Yes (Life-Threatening, Disabling)
  Sender: FDA-Public Use
  Company Number: WAES 0505USA02849

PATIENT
  Age: 67 Year
  Sex: Female

DRUGS (2)
  1. ZOCOR [Suspect]
     Indication: BLOOD CHOLESTEROL INCREASED
     Dosage: PO
     Route: 048
     Dates: start: 19900101
  2. ESTROGENS [Concomitant]

REACTIONS (3)
  - ADVERSE EVENT [None]
  - MUSCULAR WEAKNESS [None]
  - MYALGIA [None]
